FAERS Safety Report 10956588 (Version 1)
Quarter: 2015Q1

REPORT INFORMATION
  Report Type: Spontaneous
  Country: US (occurrence: None)
  Receive Date: 20150226
  Receipt Date: 20150226
  Transmission Date: 20150721
  Serious: Yes (Hospitalization)
  Sender: FDA-Public Use
  Company Number: TPA2009A03383

PATIENT
  Sex: Male

DRUGS (11)
  1. METFORMIN [Concomitant]
     Active Substance: METFORMIN HYDROCHLORIDE
  2. ACTOS [Suspect]
     Active Substance: PIOGLITAZONE HYDROCHLORIDE
     Indication: PRODUCT USED FOR UNKNOWN INDICATION
     Dosage: 1 IN 1 D
     Route: 048
  3. PANTAZOLA (ALL OTHER THERAPEUTIC PRODUCTS) [Concomitant]
  4. TRAZODONE [Concomitant]
     Active Substance: TRAZODONE HYDROCHLORIDE
  5. LACTOSE [Concomitant]
     Active Substance: LACTOSE
  6. ZETIA [Concomitant]
     Active Substance: EZETIMIBE
  7. LISINOPRIL. [Concomitant]
     Active Substance: LISINOPRIL
  8. PLAVIX (CLOPIDOGREL BISULFATE) [Concomitant]
  9. GLYBURIDE (GLIBENCLAMIDE) [Concomitant]
     Active Substance: GLYBURIDE
  10. LIPITOR [Concomitant]
     Active Substance: ATORVASTATIN CALCIUM
  11. CARVADOR (ALL OTHER THERAPEUTIC PRODUCTS) [Concomitant]

REACTIONS (2)
  - Cerebrovascular accident [None]
  - Depressed mood [None]

NARRATIVE: CASE EVENT DATE: 200903
